FAERS Safety Report 18612185 (Version 1)
Quarter: 2020Q4

REPORT INFORMATION
  Report Type: Spontaneous
  Country: GB (occurrence: GB)
  Receive Date: 20201214
  Receipt Date: 20201214
  Transmission Date: 20210114
  Serious: Yes (Life-Threatening, Hospitalization)
  Sender: FDA-Public Use
  Company Number: GB-MYLANLABS-2020M1101090

PATIENT
  Age: 67 Year
  Sex: Male
  Weight: 76.2 kg

DRUGS (1)
  1. DOXYCYCLINE. [Suspect]
     Active Substance: DOXYCYCLINE
     Indication: NASAL INFLAMMATION
     Dosage: 100 MILLIGRAM
     Route: 048
     Dates: start: 20201029, end: 20201104

REACTIONS (2)
  - Non-cardiac chest pain [Recovered/Resolved]
  - Loss of consciousness [Unknown]

NARRATIVE: CASE EVENT DATE: 20201105
